FAERS Safety Report 11986311 (Version 1)
Quarter: 2016Q1

REPORT INFORMATION
  Report Type: Spontaneous
  Country: NO (occurrence: NO)
  Receive Date: 20160202
  Receipt Date: 20160202
  Transmission Date: 20160526
  Serious: Yes (Hospitalization, Disabling)
  Sender: FDA-Public Use
  Company Number: NO-HOSPIRA-2991156

PATIENT
  Age: 59 Year
  Sex: Male

DRUGS (3)
  1. PACLITAXEL. [Suspect]
     Active Substance: PACLITAXEL
     Indication: OESOPHAGEAL CARCINOMA
     Dosage: THERAPY DURATION: 4 WEEKS
     Route: 042
     Dates: start: 201309, end: 201311
  2. DEXAMETHASONE. [Concomitant]
     Active Substance: DEXAMETHASONE
     Indication: PROPHYLAXIS OF NAUSEA AND VOMITING
     Dosage: ON THE DAYS OF CHEMOTHERAPY; THERAPY DURATION: 4 WEEKS
     Route: 048
     Dates: start: 201309, end: 201311
  3. CARBOPLATIN. [Suspect]
     Active Substance: CARBOPLATIN
     Indication: OESOPHAGEAL CARCINOMA
     Dosage: THERAPY DURATION: 4 WEEKS
     Route: 042
     Dates: start: 201309, end: 201311

REACTIONS (2)
  - Neuropathy peripheral [Not Recovered/Not Resolved]
  - Decubitus ulcer [Not Recovered/Not Resolved]

NARRATIVE: CASE EVENT DATE: 201311
